FAERS Safety Report 6229323-0 (Version None)
Quarter: 2009Q2

REPORT INFORMATION
  Report Type: 
  Country: None (occurrence: None)
  Receive Date: 20090615
  Receipt Date: 20090608
  Transmission Date: 20091009
  Serious: Yes (Other)
  Sender: FDA-Public Use
  Company Number: BR-JNJFOC-20090603813

PATIENT
  Sex: Female

DRUGS (3)
  1. HALDOL [Suspect]
     Indication: DRUG USE FOR UNKNOWN INDICATION
     Dosage: 30 DROPS
     Route: 048
  2. PAROXETINE HCL [Interacting]
     Indication: DRUG USE FOR UNKNOWN INDICATION
     Dosage: TREATMENT STARTED BEFORE INITIATING TREATMENT WITH HALOPERIDOL
     Route: 065
  3. ALFRON [Interacting]
     Indication: DRUG USE FOR UNKNOWN INDICATION
     Dosage: TREATMENT STARTED BEFORE INITIATING TREATMENT WITH HALOPERIDOL
     Route: 065

REACTIONS (6)
  - AGITATION [None]
  - BONE PAIN [None]
  - DRUG INTERACTION [None]
  - MASKED FACIES [None]
  - SOMNOLENCE [None]
  - TREMOR [None]
